FAERS Safety Report 9316315 (Version 1)
Quarter: 2013Q1

REPORT INFORMATION
  Report Type: Spontaneous
  Country: JP (occurrence: None)
  Receive Date: 20121207
  Receipt Date: 20121207
  Transmission Date: 20140127
  Serious: No
  Sender: FDA-Public Use
  Company Number: TCI2012A00673

PATIENT
  Age: 78 Year
  Sex: Female

DRUGS (1)
  1. ACTOS (PIOGLITAZONE HYDROCHLORIDE) [Suspect]
     Route: 048

REACTIONS (1)
  - Adams-Stokes syndrome [None]
